FAERS Safety Report 12675368 (Version 1)
Quarter: 2016Q3

REPORT INFORMATION
  Report Type: Spontaneous
  Country: US (occurrence: US)
  Receive Date: 20160822
  Receipt Date: 20160822
  Transmission Date: 20161109
  Serious: Yes (Other)
  Sender: FDA-Public Use
  Company Number: US-009507513-1608USA009201

PATIENT
  Age: 68 Year
  Sex: Female

DRUGS (18)
  1. MAXITROL [Concomitant]
     Active Substance: DEXAMETHASONE\NEOMYCIN SULFATE\POLYMYXIN B SULFATE
     Dosage: 1 DROP INTO RIGHT EAR 4 TIMES DAILY
     Route: 001
  2. NICODERM CQ [Concomitant]
     Active Substance: NICOTINE
     Dosage: 1 PATCH ON DRY, CLEAN, HAIRLESS SKIN ONCE DAILY, STRENGTH: 14MG/24HR
     Route: 003
  3. HABITROL [Concomitant]
     Active Substance: NICOTINE
     Dosage: 1 PATCH ON DRY, CLEAN, HAIRLESS SKIN ONCE DAILY, STRENGTH: 7MG/24HR
     Route: 003
  4. CRESTOR [Concomitant]
     Active Substance: ROSUVASTATIN CALCIUM
     Dosage: 1 TABLET AT BEDTIME
     Route: 048
  5. PRINIVIL [Concomitant]
     Active Substance: LISINOPRIL
     Dosage: 1 TABLET ONCE DAILY
     Route: 048
  6. CHOLECALCIFEROL [Concomitant]
     Active Substance: CHOLECALCIFEROL
     Dosage: 2 CAPSULES, ONCE DAILY
     Route: 048
  7. NICODERM CQ [Concomitant]
     Active Substance: NICOTINE
     Dosage: 1 PATCH ON DRY, CLEAN, HAIRLESS SKIN ONCE DAILY, STRENGTH: 7MG/24HR
     Route: 003
  8. CENTRUM SILVER [Concomitant]
     Active Substance: MINERALS\VITAMINS
     Dosage: TAKE 1 TABLET ONCE DAILY
     Route: 048
  9. TYLENOL EXTRA STRENGTH [Concomitant]
     Active Substance: ACETAMINOPHEN
     Dosage: 2 TABLETS (1000 MG) EVERY 6 HOURS AS NEEDED
     Route: 048
  10. ASPIRIN. [Concomitant]
     Active Substance: ASPIRIN
     Dosage: 1 TABLET DAILY WITH A MEAL, FORMULATION: DELAYED RELEASE TABLET
     Route: 048
  11. KLONOPIN [Concomitant]
     Active Substance: CLONAZEPAM
     Dosage: 0.5 TABLETS, AT BEDTIME
     Route: 048
  12. PRINIVIL [Suspect]
     Active Substance: LISINOPRIL
     Dosage: 1 DF, QD
     Route: 048
  13. LYRICA [Concomitant]
     Active Substance: PREGABALIN
     Dosage: 2 CAPSULES 3 TIMES DAILY
     Route: 048
  14. NITROFURANTOIN. [Concomitant]
     Active Substance: NITROFURANTOIN
     Dosage: 1 CAPSULE 2 TIMES DAILY
     Route: 048
  15. ZESTRIL [Concomitant]
     Active Substance: LISINOPRIL
     Dosage: 1 TABLET ONCE DAILY
     Route: 048
  16. GLUCOTROL [Concomitant]
     Active Substance: GLIPIZIDE
     Dosage: 5 MG IN AM AND 10 MG IN PM
  17. HABITROL [Concomitant]
     Active Substance: NICOTINE
     Dosage: 1 PATCH ON DRY, CLEAN, HAIRLESS SKIN ONCE DAILY, STRENGTH: 14MG/24HR
     Route: 003
  18. PRILOSEC [Concomitant]
     Active Substance: OMEPRAZOLE MAGNESIUM
     Indication: ABDOMINAL DISCOMFORT
     Dosage: 1 CAPSULE ONE TIME IF NEEDED
     Route: 048

REACTIONS (1)
  - Hyperkalaemia [Recovered/Resolved]

NARRATIVE: CASE EVENT DATE: 201608
